FAERS Safety Report 6476380-2 (Version None)
Quarter: 2009Q4

REPORT INFORMATION
  Report Type: 
  Country: None (occurrence: None)
  Receive Date: 20091207
  Receipt Date: 20091124
  Transmission Date: 20100525
  Serious: Yes (Hospitalization)
  Sender: FDA-Public Use
  Company Number: GB-RANBAXY-2007RR-07502

PATIENT
  Age: 9 Year
  Sex: Female

DRUGS (6)
  1. CEFTRIAXONE [Suspect]
     Indication: MENINGOCOCCAL SEPSIS
     Route: 042
  2. CEFTRIAXONE [Suspect]
     Indication: PYREXIA
  3. IBUPROFEN [Suspect]
     Indication: PYREXIA
     Route: 048
  4. IBUPROFEN [Suspect]
     Indication: MENINGOCOCCAL SEPSIS
  5. PARACETAMOL [Suspect]
     Indication: MENINGOCOCCAL SEPSIS
     Route: 048
  6. PARACETAMOL [Suspect]
     Indication: PYREXIA

REACTIONS (10)
  - ABDOMINAL PAIN [None]
  - ANURIA [None]
  - BLOOD CREATININE INCREASED [None]
  - BLOOD UREA INCREASED [None]
  - CYSTOSCOPY ABNORMAL [None]
  - HYDRONEPHROSIS [None]
  - RENAL FAILURE ACUTE [None]
  - RENAL PAPILLARY NECROSIS [None]
  - ULTRASOUND SCAN ABNORMAL [None]
  - URETERIC OBSTRUCTION [None]
